FAERS Safety Report 12654733 (Version 1)
Quarter: 2016Q3

REPORT INFORMATION
  Report Type: Spontaneous
  Country: US (occurrence: None)
  Receive Date: 20160815
  Receipt Date: 20160815
  Transmission Date: 20161109
  Serious: Yes (Other)
  Sender: FDA-Public Use
  Company Number: None

PATIENT
  Age: 41 Year
  Sex: Female
  Weight: 61.24 kg

DRUGS (15)
  1. AMITRIPTYLINE HCL [Concomitant]
     Active Substance: AMITRIPTYLINE
  2. ALLERGY MEDICINE [Concomitant]
     Active Substance: DIPHENHYDRAMINE HYDROCHLORIDE
  3. GABAPENTIN. [Concomitant]
     Active Substance: GABAPENTIN
  4. ESCITALOPRAM OXALATE. [Concomitant]
     Active Substance: ESCITALOPRAM OXALATE
  5. ALPRAZOLAM. [Concomitant]
     Active Substance: ALPRAZOLAM
  6. ADVIL [Concomitant]
     Active Substance: IBUPROFEN
  7. ALIGN - PROBIOTIC SUPPLEMENT [Concomitant]
  8. GINKGO BILOBA [Concomitant]
     Active Substance: GINKGO
  9. COPAXONE [Suspect]
     Active Substance: GLATIRAMER ACETATE
     Indication: MULTIPLE SCLEROSIS
     Dates: start: 20160201
  10. TOPAMAX [Suspect]
     Active Substance: TOPIRAMATE
  11. VITAMIN D [Concomitant]
     Active Substance: CHOLECALCIFEROL
  12. ATORVASTATIN CALCIUM. [Concomitant]
     Active Substance: ATORVASTATIN CALCIUM
  13. TOPAMAX LEVEMIR FLEX TOUCH [Concomitant]
  14. YAZ [Concomitant]
     Active Substance: DROSPIRENONE\ETHINYL ESTRADIOL
  15. SUPER B-COMPLEX [Concomitant]

REACTIONS (17)
  - Compulsive shopping [None]
  - Delusion [None]
  - Tachyphrenia [None]
  - Obsessive-compulsive disorder [None]
  - Restlessness [None]
  - Nervousness [None]
  - Weight decreased [None]
  - Judgement impaired [None]
  - Speech disorder [None]
  - Mania [None]
  - Insomnia [None]
  - Ovarian cyst [None]
  - Abnormal behaviour [None]
  - Periarthritis [None]
  - Infection [None]
  - Paranoia [None]
  - Personality change [None]

NARRATIVE: CASE EVENT DATE: 20160715
